FAERS Safety Report 12831689 (Version 8)
Quarter: 2017Q1

REPORT INFORMATION
  Report Type: Spontaneous
  Country: DE (occurrence: DE)
  Receive Date: 20161010
  Receipt Date: 20170125
  Transmission Date: 20170428
  Serious: Yes (Life-Threatening, Other)
  Sender: FDA-Public Use
  Company Number: DE-BEH-2016073934

PATIENT
  Age: 75 Year
  Sex: Male

DRUGS (5)
  1. BERIPLEX P/N [Suspect]
     Active Substance: COAGULATION FACTOR IX HUMAN\COAGULATION FACTOR VII HUMAN\COAGULATION FACTOR X HUMAN\PROTEIN C\PROTEIN S HUMAN\PROTHROMBIN
     Dosage: UNK
     Route: 042
     Dates: start: 20160913, end: 20160913
  2. WARFARIN [Concomitant]
     Active Substance: WARFARIN
     Indication: ATRIAL FIBRILLATION
  3. BERIPLEX P/N [Suspect]
     Active Substance: COAGULATION FACTOR IX HUMAN\COAGULATION FACTOR VII HUMAN\COAGULATION FACTOR X HUMAN\PROTEIN C\PROTEIN S HUMAN\PROTHROMBIN
     Dosage: UNK
     Route: 042
     Dates: start: 20160913, end: 20160913
  4. BERIPLEX P/N [Suspect]
     Active Substance: COAGULATION FACTOR IX HUMAN\COAGULATION FACTOR VII HUMAN\COAGULATION FACTOR X HUMAN\PROTEIN C\PROTEIN S HUMAN\PROTHROMBIN
     Indication: COAGULOPATHY
     Dosage: UNK
     Route: 042
     Dates: start: 20160913, end: 20160913
  5. BERIPLEX P/N [Suspect]
     Active Substance: COAGULATION FACTOR IX HUMAN\COAGULATION FACTOR VII HUMAN\COAGULATION FACTOR X HUMAN\PROTEIN C\PROTEIN S HUMAN\PROTHROMBIN
     Dosage: UNK
     Route: 042
     Dates: start: 20160913, end: 20160913

REACTIONS (8)
  - Shock [Recovered/Resolved]
  - Circulatory collapse [Recovered/Resolved]
  - Oxygen saturation decreased [Recovered/Resolved]
  - Lung infiltration [Recovered/Resolved]
  - Transfusion-related acute lung injury [Recovered/Resolved]
  - Hypoxia [Recovered/Resolved]
  - Hypotension [Recovered/Resolved]
  - Pulmonary oedema [Recovered/Resolved]

NARRATIVE: CASE EVENT DATE: 20160913
